FAERS Safety Report 13918063 (Version 2)
Quarter: 2017Q3

REPORT INFORMATION
  Report Type: Spontaneous
  Country: US (occurrence: US)
  Receive Date: 20170829
  Receipt Date: 20170905
  Transmission Date: 20171127
  Serious: Yes (Other)
  Sender: FDA-Public Use
  Company Number: PHHY2017US124668

PATIENT
  Age: 51 Year
  Sex: Female

DRUGS (2)
  1. THIAMAZOLE [Suspect]
     Active Substance: METHIMAZOLE
     Dosage: 10 MG, QD
     Route: 048
  2. THIAMAZOLE [Suspect]
     Active Substance: METHIMAZOLE
     Indication: HYPERTHYROIDISM
     Dosage: 10 MG, QD
     Route: 048

REACTIONS (6)
  - Diarrhoea [Unknown]
  - Pancreatitis acute [Recovered/Resolved]
  - Abdominal pain upper [Unknown]
  - Decreased appetite [Unknown]
  - Pyrexia [Unknown]
  - Abdominal discomfort [Unknown]
